FAERS Safety Report 15150393 (Version 1)
Quarter: 2018Q3

REPORT INFORMATION
  Report Type: Spontaneous
  Country: US (occurrence: US)
  Receive Date: 20180619
  Receipt Date: 20180619
  Transmission Date: 20181010
  Serious: Yes (Other)
  Sender: FDA-Public Use
  Company Number: None

PATIENT
  Age: 74 Year
  Sex: Female

DRUGS (1)
  1. CYANOCOBALAMIN 1000MCG/ML INJ 1 ML VI [Suspect]
     Active Substance: CYANOCOBALAMIN
     Indication: VITAMIN SUPPLEMENTATION
     Dosage: ?          OTHER FREQUENCY:EVERY 2 WKS;?
     Route: 030

REACTIONS (4)
  - Arthralgia [None]
  - Gait disturbance [None]
  - Pain [None]
  - Pain in extremity [None]

NARRATIVE: CASE EVENT DATE: 20180402
